FAERS Safety Report 6439677-8 (Version None)
Quarter: 2009Q4

REPORT INFORMATION
  Report Type: 
  Country: None (occurrence: None)
  Receive Date: 20091113
  Receipt Date: 20091103
  Transmission Date: 20100525
  Serious: Yes (Life-Threatening, Hospitalization)
  Sender: FDA-Public Use
  Company Number: GXKR2009HU11740

PATIENT
  Age: 32 Year
  Sex: Male

DRUGS (2)
  1. RISPERIDONE [Suspect]
     Route: 065
  2. OLANZAPINE [Suspect]
     Route: 065

REACTIONS (12)
  - BLOOD CREATINE PHOSPHOKINASE INCREASED [None]
  - COMA [None]
  - DELIRIUM [None]
  - DIURETIC THERAPY [None]
  - ENDOTRACHEAL INTUBATION [None]
  - HYPOGLYCAEMIA [None]
  - INTENTIONAL OVERDOSE [None]
  - LEUKOCYTOSIS [None]
  - MECHANICAL VENTILATION [None]
  - PYREXIA [None]
  - RESPIRATORY DEPRESSION [None]
  - SUICIDE ATTEMPT [None]
